FAERS Safety Report 12712440 (Version 1)
Quarter: 2016Q3

REPORT INFORMATION
  Report Type: Spontaneous
  Country: GB (occurrence: GB)
  Receive Date: 20160902
  Receipt Date: 20160902
  Transmission Date: 20161109
  Serious: Yes (Other)
  Sender: FDA-Public Use
  Company Number: GB-TEVA-687458ACC

PATIENT
  Age: 50 Year
  Sex: Female
  Weight: 88.9 kg

DRUGS (1)
  1. PREGABALIN. [Suspect]
     Active Substance: PREGABALIN
     Indication: NEURALGIA
     Dosage: UP TO 300MG TWICE A DAY
     Route: 048
     Dates: start: 2011, end: 2014

REACTIONS (5)
  - Akathisia [Recovered/Resolved]
  - Restless legs syndrome [Recovered/Resolved]
  - Withdrawal syndrome [Recovered/Resolved]
  - Insomnia [Recovered/Resolved]
  - Hyperhidrosis [Recovered/Resolved]
